FAERS Safety Report 6732582-9 (Version None)
Quarter: 2010Q2

REPORT INFORMATION
  Report Type: 
  Country: None (occurrence: None)
  Receive Date: 20100519
  Receipt Date: 20100511
  Transmission Date: 20101027
  Serious: Yes (Hospitalization)
  Sender: FDA-Public Use
  Company Number: US-B.I. PHARMACEUTICALS,INC./RIDGEFIELD-2010-BP-05372BP

PATIENT
  Sex: Female

DRUGS (3)
  1. ZANTAC 75 [Suspect]
     Indication: GASTROOESOPHAGEAL REFLUX DISEASE
     Dosage: 450 MG
     Route: 048
     Dates: end: 20100401
  2. CLARITIN [Concomitant]
     Indication: MULTIPLE ALLERGIES
  3. ACETAMINOPHEN [Concomitant]
     Indication: ARTHRITIS

REACTIONS (1)
  - ARTHRITIS [None]
